FAERS Safety Report 19422269 (Version 1)
Quarter: 2021Q2

REPORT INFORMATION
  Report Type: Spontaneous
  Country: US (occurrence: US)
  Receive Date: 20210615
  Receipt Date: 20210615
  Transmission Date: 20210717
  Serious: No
  Sender: FDA-Public Use
  Company Number: None

PATIENT
  Age: 67 Year
  Sex: Female

DRUGS (7)
  1. EVEROLIMUS 0.5MG [Suspect]
     Active Substance: EVEROLIMUS
     Indication: LIVER TRANSPLANT
     Dosage: ?          QUANTITY:1 DF DOSAGE FORM;?
     Route: 048
     Dates: start: 20210529, end: 20210609
  2. URSODIOL. [Concomitant]
     Active Substance: URSODIOL
  3. TACROLIMUS. [Concomitant]
     Active Substance: TACROLIMUS
  4. PIOGLITAZONE. [Concomitant]
     Active Substance: PIOGLITAZONE
  5. PANTOPRAZOLE [Concomitant]
     Active Substance: PANTOPRAZOLE
  6. AMLODIPINE [Concomitant]
     Active Substance: AMLODIPINE BESYLATE
  7. LEVOTHYROXINE. [Concomitant]
     Active Substance: LEVOTHYROXINE

REACTIONS (2)
  - Abdominal pain upper [None]
  - Pain of skin [None]

NARRATIVE: CASE EVENT DATE: 20210531
